FAERS Safety Report 18834658 (Version 2)
Quarter: 2021Q1

REPORT INFORMATION
  Report Type: Spontaneous
  Country: DE (occurrence: DE)
  Receive Date: 20210203
  Receipt Date: 20210209
  Transmission Date: 20210419
  Serious: Yes (Death, Life-Threatening, Hospitalization, Other)
  Sender: FDA-Public Use
  Company Number: DE-VELOXIS PHARMACEUTICALS-2018VELDE-000341

PATIENT
  Age: 63 Year
  Sex: Female

DRUGS (6)
  1. EVEROLIMUS. [Suspect]
     Active Substance: EVEROLIMUS
     Indication: IMMUNOSUPPRESSANT DRUG THERAPY
     Dosage: 0.6 MILLIGRAM, QD
     Route: 065
  2. COTRIMOXAZOLE [Concomitant]
     Active Substance: SULFAMETHOXAZOLE\TRIMETHOPRIM
     Indication: INFECTION PROPHYLAXIS
     Dosage: 960 MG, 2 TIMES A WEEK
  3. PREDNISOLONE. [Suspect]
     Active Substance: PREDNISOLONE
     Indication: IMMUNOSUPPRESSANT DRUG THERAPY
     Dosage: 5 MILLIGRAM, QD
     Route: 065
  4. MYCOPHENOLIC ACID. [Suspect]
     Active Substance: MYCOPHENOLIC ACID
     Indication: IMMUNOSUPPRESSANT DRUG THERAPY
     Dosage: 2 GRAM, QD
     Route: 065
  5. ITRACONAZOLE. [Concomitant]
     Active Substance: ITRACONAZOLE
     Indication: INFECTION PROPHYLAXIS
     Dosage: 200 MILLIGRAM, QD
     Route: 065
  6. ENVARSUS XR [Suspect]
     Active Substance: TACROLIMUS
     Indication: IMMUNOSUPPRESSANT DRUG THERAPY
     Dosage: 1 MILLIGRAM, QD
     Route: 065

REACTIONS (20)
  - Subarachnoid haemorrhage [Unknown]
  - Hypokalaemia [Unknown]
  - Rash [Unknown]
  - Coma [Unknown]
  - Disseminated varicella zoster vaccine virus infection [Fatal]
  - Pneumonia [Unknown]
  - Multiple organ dysfunction syndrome [Unknown]
  - White blood cell count decreased [Unknown]
  - Liver disorder [Unknown]
  - Cerebral infarction [Unknown]
  - Acute respiratory failure [Unknown]
  - Varicella zoster virus infection [Not Recovered/Not Resolved]
  - Klebsiella infection [Unknown]
  - Encephalitis [Unknown]
  - Respiratory failure [Fatal]
  - Hyponatraemia [Unknown]
  - Septic shock [Unknown]
  - Gastrointestinal infection [Unknown]
  - Diarrhoea [Unknown]
  - Intentional product use issue [Unknown]
